FAERS Safety Report 6312111-4 (Version None)
Quarter: 2009Q3

REPORT INFORMATION
  Report Type: 
  Country: None (occurrence: None)
  Receive Date: 20090813
  Receipt Date: 20090813
  Transmission Date: 20100115
  Serious: Yes (Death)
  Sender: FDA-Public Use
  Company Number: None

PATIENT
  Age: 53 Year
  Sex: Female
  Weight: 65.4994 kg

DRUGS (5)
  1. ONTAK [Suspect]
     Indication: OVARIAN CANCER METASTATIC
     Dosage: 12 MCG/KG IV Q 28 DAYS
     Route: 042
     Dates: start: 20090625
  2. ONTAK [Suspect]
     Indication: OVARIAN CANCER METASTATIC
     Dosage: 12 MCG/KG IV Q 28 DAYS
     Route: 042
     Dates: start: 20090723
  3. ANTACID OTC [Concomitant]
  4. COMPAZINE [Concomitant]
  5. NAPROXEN [Concomitant]

REACTIONS (2)
  - CARDIO-RESPIRATORY ARREST [None]
  - UNRESPONSIVE TO STIMULI [None]
